FAERS Safety Report 6633012-8 (Version None)
Quarter: 2010Q1

REPORT INFORMATION
  Report Type: 
  Country: None (occurrence: None)
  Receive Date: 20100312
  Receipt Date: 20100305
  Transmission Date: 20100710
  Serious: Yes (Death, Other)
  Sender: FDA-Public Use
  Company Number: US-BAXTER-2010BH004367

PATIENT
  Sex: Male

DRUGS (1)
  1. HEPARIN SODIUM INJECTION [Suspect]
     Indication: DIALYSIS
     Route: 042

REACTIONS (5)
  - DEATH [None]
  - DRUG HYPERSENSITIVITY [None]
  - HAEMATOMA [None]
  - HYPOTENSION [None]
  - PLATELET DISORDER [None]
